FAERS Safety Report 5385130-2 (Version None)
Quarter: 2007Q3

REPORT INFORMATION
  Report Type: 
  Country: None (occurrence: None)
  Receive Date: 20070706
  Receipt Date: 20070706
  Transmission Date: 20080115
  Serious: Yes (Life-Threatening, Hospitalization)
  Sender: FDA-Public Use
  Company Number: None

PATIENT
  Sex: Female

DRUGS (3)
  1. LEVAQUIN [Suspect]
     Indication: COUGH
     Dosage: PO
     Route: 048
     Dates: start: 20070704
  2. LEVAQUIN [Suspect]
     Indication: PYREXIA
     Dosage: PO
     Route: 048
     Dates: start: 20070704
  3. MULTIPLE MEDICATIONS [Concomitant]

REACTIONS (2)
  - DERMATITIS ALLERGIC [None]
  - DYSPNOEA [None]
